FAERS Safety Report 25400567 (Version 2)
Quarter: 2025Q3

REPORT INFORMATION
  Report Type: Spontaneous
  Country: US (occurrence: US)
  Receive Date: 20250605
  Receipt Date: 20250720
  Transmission Date: 20251021
  Serious: No
  Sender: DR REDDYS
  Company Number: US-DRL-USA-USA/2025/05/007765

PATIENT
  Age: 41 Year
  Sex: Male
  Weight: 71.21 kg

DRUGS (3)
  1. BUPRENORPHINE AND NALOXONE SUBLINGUAL FILM [Suspect]
     Active Substance: BUPRENORPHINE HYDROCHLORIDE\NALOXONE HYDROCHLORIDE
     Indication: Drug dependence
     Dosage: 8 MG / 2 MG STRENGTH?1.5 FILM EVERY DAY.
     Route: 060
     Dates: start: 2014
  2. BUPRENORPHINE AND NALOXONE SUBLINGUAL FILM [Suspect]
     Active Substance: BUPRENORPHINE HYDROCHLORIDE\NALOXONE HYDROCHLORIDE
     Dosage: PURCHASED ON 27-APR-2025?8 MG / 2 MG STRENGTH?1.5 FILM EVERY DAY.
     Route: 060
     Dates: start: 20250428
  3. LOSARTAN [Concomitant]
     Active Substance: LOSARTAN
     Indication: Hypertension
     Route: 048

REACTIONS (6)
  - Product prescribing error [Unknown]
  - Wrong technique in product usage process [Unknown]
  - Confusional state [Recovered/Resolved]
  - Hot flush [Unknown]
  - Flushing [Unknown]
  - Muscular weakness [Unknown]

NARRATIVE: CASE EVENT DATE: 20140101
